FAERS Safety Report 21526469 (Version 2)
Quarter: 2022Q4

REPORT INFORMATION
  Report Type: Spontaneous
  Country: GR (occurrence: GR)
  Receive Date: 20221031
  Receipt Date: 20221128
  Transmission Date: 20230113
  Serious: Yes (Other)
  Sender: FDA-Public Use
  Company Number: GR-JNJFOC-20221045263

PATIENT
  Weight: 89 kg

DRUGS (1)
  1. HALOPERIDOL DECANOATE [Suspect]
     Active Substance: HALOPERIDOL DECANOATE
     Indication: Product used for unknown indication
     Dosage: DOUBLE INJECTION EVERY 1ST DAY OF MONTH
     Route: 065

REACTIONS (2)
  - Ejaculation disorder [Not Recovered/Not Resolved]
  - Azoospermia [Unknown]
